FAERS Safety Report 9678356 (Version 1)
Quarter: 2013Q4

REPORT INFORMATION
  Report Type: Report from Study
  Country: IE (occurrence: IE)
  Receive Date: 20131108
  Receipt Date: 20131108
  Transmission Date: 20140711
  Serious: Yes (Other)
  Sender: FDA-Public Use
  Company Number: IE-ROCHE-1301388

PATIENT
  Age: 30 Year
  Sex: Male
  Weight: 45 kg

DRUGS (12)
  1. OMALIZUMAB [Suspect]
     Indication: ASTHMA
     Route: 058
     Dates: start: 20130904
  2. OMALIZUMAB [Suspect]
     Route: 065
  3. OMALIZUMAB [Suspect]
     Route: 058
  4. OMALIZUMAB [Suspect]
     Route: 065
     Dates: start: 20131002
  5. OMALIZUMAB [Suspect]
     Route: 065
     Dates: start: 20131016
  6. OMALIZUMAB [Suspect]
     Route: 065
     Dates: start: 20131030
  7. VENTOLIN [Concomitant]
  8. SALINE [Concomitant]
  9. SALBUTAMOL INHALER [Concomitant]
  10. SPIRIVA [Concomitant]
  11. DELTACORTRIL ENTERIC [Concomitant]
  12. SYMBICORT [Concomitant]

REACTIONS (8)
  - Flushing [Recovered/Resolved]
  - Wheezing [Recovered/Resolved]
  - Cough [Recovered/Resolved]
  - Lethargy [Not Recovered/Not Resolved]
  - Eye pruritus [Recovered/Resolved]
  - Nightmare [Recovered/Resolved]
  - Blood pressure systolic increased [Unknown]
  - Heart rate increased [Recovering/Resolving]
